FAERS Safety Report 5899453-1 (Version None)
Quarter: 2008Q3

REPORT INFORMATION
  Report Type: 
  Country: None (occurrence: None)
  Receive Date: 20080926
  Receipt Date: 20080916
  Transmission Date: 20090109
  Serious: Yes (Hospitalization)
  Sender: FDA-Public Use
  Company Number: GB-RANBAXY-2007RR-11284

PATIENT
  Age: 58 Year
  Sex: Female

DRUGS (11)
  1. CLARITHROMYCIN [Suspect]
     Dosage: UNK
     Dates: end: 20071009
  2. EPILIM [Suspect]
     Indication: EPILEPSY
     Dosage: 400 MG, BID
     Route: 048
  3. CLARITHROMYCIN [Suspect]
     Indication: LOWER RESPIRATORY TRACT INFECTION
     Dosage: 250 MG, BID
     Route: 048
     Dates: start: 20071008
  4. ATORVASTATIN CALCIUM [Concomitant]
     Dosage: 10 MG, QD
  5. BISOPROLOL FUMARATE [Concomitant]
  6. DIAZEPAM [Concomitant]
     Dosage: 10 MG, TID
     Route: 048
  7. LAMICTAL [Concomitant]
     Dosage: 100 MG, BID
  8. LEVOTHYROXINE SODIUM [Concomitant]
     Dosage: 50 UG, QD
  9. NEXIUM [Concomitant]
     Dosage: 20 MG, QD
  10. TEMAZEPAM [Concomitant]
     Dosage: 10 MG, UNK
  11. VALSARTAN [Concomitant]
     Dosage: 40 MG, QD

REACTIONS (3)
  - CONVULSION [None]
  - DRUG INTERACTION [None]
  - TREMOR [None]
